FAERS Safety Report 13352581 (Version 1)
Quarter: 2017Q1

REPORT INFORMATION
  Report Type: Spontaneous
  Country: US (occurrence: US)
  Receive Date: 20170320
  Receipt Date: 20170320
  Transmission Date: 20170429
  Serious: Yes (Hospitalization, Other)
  Sender: FDA-Public Use
  Company Number: US-DEPOMED, INC.-US-2017DEP000553

PATIENT

DRUGS (2)
  1. GRALISE [Suspect]
     Active Substance: GABAPENTIN
     Indication: EPILEPSY
     Dosage: 2400 MG, QD
     Route: 048
     Dates: start: 20160121
  2. GRALISE [Suspect]
     Active Substance: GABAPENTIN
     Indication: SIMPLE PARTIAL SEIZURES

REACTIONS (4)
  - Myocardial infarction [Unknown]
  - Overdose [Not Recovered/Not Resolved]
  - Drug titration error [Not Recovered/Not Resolved]
  - Product use issue [Not Recovered/Not Resolved]

NARRATIVE: CASE EVENT DATE: 20160121
